FAERS Safety Report 19117333 (Version 2)
Quarter: 2021Q2

REPORT INFORMATION
  Report Type: Spontaneous
  Country: US (occurrence: US)
  Receive Date: 20210409
  Receipt Date: 20210414
  Transmission Date: 20210717
  Serious: Yes (Other)
  Sender: FDA-Public Use
  Company Number: US-REGENERON PHARMACEUTICALS, INC.-2021-40597

PATIENT

DRUGS (2)
  1. LIBTAYO [Suspect]
     Active Substance: CEMIPLIMAB-RWLC
     Indication: METASTATIC SQUAMOUS CELL CARCINOMA
     Dosage: 350 MG, Q3W
     Route: 042
  2. LIBTAYO [Suspect]
     Active Substance: CEMIPLIMAB-RWLC
     Dosage: 350 MG, Q3W
     Route: 042

REACTIONS (11)
  - Glycosuria [Recovered/Resolved]
  - Intercapillary glomerulosclerosis [Recovered/Resolved]
  - Bradycardia [Recovered/Resolved]
  - Fatigue [Recovered/Resolved]
  - Oedema peripheral [Recovered/Resolved]
  - Proteinuria [Recovered/Resolved]
  - Blood albumin decreased [Recovered/Resolved]
  - Glomerulonephritis membranous [Recovered/Resolved]
  - Blood pressure increased [Recovered/Resolved]
  - Blood creatinine increased [Recovered/Resolved]
  - Blood urea increased [Recovered/Resolved]
